FAERS Safety Report 19935219 (Version 1)
Quarter: 2021Q4

REPORT INFORMATION
  Report Type: Spontaneous
  Country: CN (occurrence: CN)
  Receive Date: 20211009
  Receipt Date: 20211009
  Transmission Date: 20220304
  Serious: Yes (Other)
  Sender: FDA-Public Use
  Company Number: CN-ABBVIE-21K-035-4108652-00

PATIENT
  Age: 60 Year
  Sex: Male
  Weight: 60 kg

DRUGS (5)
  1. VALPROATE SODIUM [Suspect]
     Active Substance: VALPROATE SODIUM
     Indication: Epilepsy
     Route: 050
     Dates: start: 20180830, end: 20180904
  2. GANGLIOSIDE GM1 [Suspect]
     Active Substance: GANGLIOSIDE GM1
     Indication: Craniocerebral injury
     Route: 041
     Dates: start: 20180830, end: 20180904
  3. EPERISONE HYDROCHLORIDE [Suspect]
     Active Substance: EPERISONE HYDROCHLORIDE
     Indication: Intracranial aneurysm
     Route: 050
     Dates: start: 20180830, end: 20180904
  4. ACEGLUTAMIDE [Suspect]
     Active Substance: ACEGLUTAMIDE
     Indication: Craniocerebral injury
     Route: 041
     Dates: start: 20180830, end: 20180904
  5. CEFOPERAZONE SODIUM\SULBACTAM SODIUM [Suspect]
     Active Substance: CEFOPERAZONE SODIUM\SULBACTAM SODIUM
     Indication: Pneumonia
     Route: 041
     Dates: start: 20180830, end: 20180903

REACTIONS (1)
  - Dermatitis exfoliative [Recovering/Resolving]

NARRATIVE: CASE EVENT DATE: 20180904
